FAERS Safety Report 15685193 (Version 1)
Quarter: 2018Q4

REPORT INFORMATION
  Report Type: Spontaneous
  Country: US (occurrence: US)
  Receive Date: 20181121
  Receipt Date: 20181121
  Transmission Date: 20190205
  Serious: No
  Sender: FDA-Public Use
  Company Number: None

PATIENT
  Sex: Female

DRUGS (1)
  1. HYDROXYPROGESTERONE 250MG/ML (1ML SDV) [Suspect]
     Active Substance: HYDROXYPROGESTERONE
     Dates: start: 201810

REACTIONS (2)
  - Post procedural complication [None]
  - Gait disturbance [None]
